FAERS Safety Report 6559085-9 (Version None)
Quarter: 2010Q1

REPORT INFORMATION
  Report Type: 
  Country: None (occurrence: None)
  Receive Date: 20100129
  Receipt Date: 20100118
  Transmission Date: 20100710
  Serious: Yes (Hospitalization)
  Sender: FDA-Public Use
  Company Number: US-ELI_LILLY_AND_COMPANY-US201001003955

PATIENT
  Sex: Female

DRUGS (5)
  1. FORTEO [Suspect]
     Indication: OSTEOPOROSIS
     Dosage: 20 UG, DAILY (1/D)
     Dates: start: 20091001, end: 20100111
  2. ATACAND [Concomitant]
     Dosage: 16 MG, DAILY (1/D)
  3. HYDROCHLOROTHIAZIDE [Concomitant]
     Dosage: 25 MG, DAILY (1/D)
  4. CALCIUM [Concomitant]
  5. VITAMIN D [Concomitant]
     Dosage: 3000 IU, DAILY (1/D)

REACTIONS (3)
  - ANKLE FRACTURE [None]
  - EXPIRED DRUG ADMINISTERED [None]
  - MEDICATION ERROR [None]
